FAERS Safety Report 23502889 (Version 1)
Quarter: 2024Q1

REPORT INFORMATION
  Report Type: Spontaneous
  Country: US (occurrence: US)
  Receive Date: 20240208
  Receipt Date: 20240208
  Transmission Date: 20240409
  Serious: No
  Sender: FDA-Public Use
  Company Number: US-INTRA-CELLULAR THERAPIES, INC.-2023ICT01282

PATIENT
  Age: 20 Year
  Sex: Female
  Weight: 56.871 kg

DRUGS (4)
  1. CAPLYTA [Suspect]
     Active Substance: LUMATEPERONE
     Indication: Bipolar disorder
     Dosage: 42 MG AFTER EATING
     Route: 048
     Dates: start: 20230909, end: 20230910
  2. CAPLYTA [Suspect]
     Active Substance: LUMATEPERONE
     Indication: Mood swings
  3. FOLATE SODIUM [Concomitant]
     Active Substance: FOLATE SODIUM
  4. PROBIOTICS NOS [Concomitant]
     Active Substance: PROBIOTICS NOS

REACTIONS (10)
  - Paraesthesia [Recovering/Resolving]
  - Anxiety [Recovering/Resolving]
  - Hot flush [Not Recovered/Not Resolved]
  - Hyperhidrosis [Recovering/Resolving]
  - Migraine [Recovering/Resolving]
  - Discomfort [Recovering/Resolving]
  - Dizziness [Recovering/Resolving]
  - Vomiting projectile [Recovering/Resolving]
  - Headache [Recovering/Resolving]
  - Nausea [Not Recovered/Not Resolved]

NARRATIVE: CASE EVENT DATE: 20230909
